FAERS Safety Report 4629853-9 (Version None)
Quarter: 2005Q2

REPORT INFORMATION
  Report Type: 
  Country: None (occurrence: None)
  Receive Date: 20050407
  Receipt Date: 20050331
  Transmission Date: 20051028
  Serious: Yes (Hospitalization)
  Sender: FDA-Public Use
  Company Number: 2005052101

PATIENT
  Sex: Male
  Weight: 88 kg

DRUGS (6)
  1. ATORVASTATIN CALCIUM [Suspect]
     Indication: HYPERLIPIDAEMIA
     Dosage: 40 MG (40 MG, 1 IN 1 D), ORAL
     Route: 048
     Dates: start: 20041202
  2. VERAPAMIL HCL [Suspect]
     Indication: HYPERTENSION
     Dosage: 240 MG (240 MG, 1 IN 1 D), ORAL
     Route: 048
     Dates: end: 20041217
  3. METOPROLOL SUCCINATE [Suspect]
     Indication: HYPERTENSION
     Dosage: 100 MG (1 IN 1 D), ORAL
     Route: 048
     Dates: end: 20041217
  4. RAMIPRIL [Suspect]
     Indication: HYPERTENSION
     Dosage: 5 MG (2.5 MG, 2 IN 1 D), ORAL
     Route: 048
     Dates: start: 20041209
  5. PHENPROCOUMON (PHENPROCOUMON) [Concomitant]
  6. OLANZAPINE [Concomitant]

REACTIONS (7)
  - BRADYCARDIA [None]
  - HYPOTENSION [None]
  - NAUSEA [None]
  - PULSE ABSENT [None]
  - SOMNOLENCE [None]
  - SYNCOPE [None]
  - VERTIGO [None]
